FAERS Safety Report 17803452 (Version 1)
Quarter: 2020Q2

REPORT INFORMATION
  Report Type: Spontaneous
  Country: CN (occurrence: CN)
  Receive Date: 20200519
  Receipt Date: 20200519
  Transmission Date: 20200714
  Serious: Yes (Other)
  Sender: FDA-Public Use
  Company Number: CN-PFIZER INC-2020194467

PATIENT
  Age: 78 Year
  Sex: Male
  Weight: 60 kg

DRUGS (2)
  1. LINEZOLID. [Suspect]
     Active Substance: LINEZOLID
     Indication: MENINGITIS BACTERIAL
  2. LINEZOLID. [Suspect]
     Active Substance: LINEZOLID
     Indication: ENCEPHALITIS
     Dosage: 300 ML, TWICE A DAY (EVERY 12 HOURS)
     Route: 041
     Dates: start: 20200425, end: 20200429

REACTIONS (5)
  - Off label use [Unknown]
  - Lipase increased [Recovering/Resolving]
  - Amylase increased [Recovering/Resolving]
  - Discomfort [Recovering/Resolving]
  - Product use in unapproved indication [Unknown]

NARRATIVE: CASE EVENT DATE: 2020
